FAERS Safety Report 9885416 (Version 1)
Quarter: 2014Q1

REPORT INFORMATION
  Report Type: Spontaneous
  Country: SE (occurrence: SE)
  Receive Date: 20140210
  Receipt Date: 20140210
  Transmission Date: 20141002
  Serious: Yes (Hospitalization)
  Sender: FDA-Public Use
  Company Number: SE-MERCK-1402SWE003204

PATIENT
  Sex: Female

DRUGS (1)
  1. JANUVIA [Suspect]
     Indication: DIABETES MELLITUS
     Dosage: 1 TABLET, QD
     Route: 048
     Dates: start: 20131015

REACTIONS (2)
  - Pancreatic neoplasm [Not Recovered/Not Resolved]
  - Fatigue [Not Recovered/Not Resolved]
